FAERS Safety Report 18554119 (Version 1)
Quarter: 2020Q4

REPORT INFORMATION
  Report Type: Spontaneous
  Country: BE (occurrence: BE)
  Receive Date: 20201127
  Receipt Date: 20201127
  Transmission Date: 20210114
  Serious: Yes (Other)
  Sender: FDA-Public Use
  Company Number: BE-AMNEAL PHARMACEUTICALS-2020-AMRX-03690

PATIENT
  Age: 35 Year
  Sex: Male

DRUGS (9)
  1. AZATHIOPRINE. [Suspect]
     Active Substance: AZATHIOPRINE
     Indication: SCLERITIS
     Dosage: 150 MILLIGRAM, DAILY
     Route: 065
  2. SOLU-MEDROL [Suspect]
     Active Substance: METHYLPREDNISOLONE SODIUM SUCCINATE
     Indication: SCLERITIS
     Dosage: 1 GRAM, DAILY
     Route: 042
  3. IBUPROFEN. [Concomitant]
     Active Substance: IBUPROFEN
     Indication: SCLERITIS
     Dosage: 600 MILLIGRAM, 3X/DAY
     Route: 065
  4. NEPAFENAC [Concomitant]
     Active Substance: NEPAFENAC
     Indication: SCLERITIS
     Dosage: 0.1 PERCENT, QD
     Route: 061
  5. AZATHIOPRINE. [Suspect]
     Active Substance: AZATHIOPRINE
     Indication: ACANTHAMOEBA KERATITIS
  6. SOLU-MEDROL [Suspect]
     Active Substance: METHYLPREDNISOLONE SODIUM SUCCINATE
     Indication: ACANTHAMOEBA KERATITIS
  7. NEPAFENAC [Concomitant]
     Active Substance: NEPAFENAC
     Indication: ACANTHAMOEBA KERATITIS
  8. METHYLPREDNISOLONE. [Suspect]
     Active Substance: METHYLPREDNISOLONE
     Indication: SCLERITIS
     Dosage: UNK
     Route: 048
  9. IBUPROFEN. [Concomitant]
     Active Substance: IBUPROFEN
     Indication: ACANTHAMOEBA KERATITIS

REACTIONS (5)
  - Anaemia [Unknown]
  - Aspergillus infection [Unknown]
  - Blood lactate dehydrogenase increased [Unknown]
  - Osteonecrosis [Unknown]
  - Myopathy [Unknown]
